FAERS Safety Report 5751581-7 (Version None)
Quarter: 2008Q2

REPORT INFORMATION
  Report Type: 
  Country: None (occurrence: None)
  Receive Date: 20080528
  Receipt Date: 20080519
  Transmission Date: 20081010
  Serious: Yes (Hospitalization, Other)
  Sender: FDA-Public Use
  Company Number: PHEH2006US11165

PATIENT
  Sex: Female
  Weight: 70.748 kg

DRUGS (2)
  1. VIVELLE [Suspect]
     Indication: HORMONE REPLACEMENT THERAPY
     Route: 062
     Dates: end: 20010101
  2. PREMARIN [Suspect]
     Indication: HORMONE REPLACEMENT THERAPY
     Dates: end: 19970101

REACTIONS (48)
  - BIOPSY BREAST ABNORMAL [None]
  - BREAST CANCER [None]
  - BREAST CANCER METASTATIC [None]
  - BREAST COSMETIC SURGERY [None]
  - BREAST PAIN [None]
  - BREAST RECONSTRUCTION [None]
  - CATARACT OPERATION [None]
  - CHEMOTHERAPY [None]
  - CHEST PAIN [None]
  - CHRONIC OBSTRUCTIVE PULMONARY DISEASE [None]
  - COLONIC POLYP [None]
  - COLONOSCOPY [None]
  - COUGH [None]
  - DIABETES MELLITUS [None]
  - DIABETIC RETINOPATHY [None]
  - DIARRHOEA [None]
  - DIVERTICULITIS [None]
  - DYSPNOEA [None]
  - FIBROMYALGIA [None]
  - HAEMATOMA [None]
  - HAEMORRHAGE [None]
  - HAEMORRHOIDS [None]
  - HYPERGLYCAEMIA [None]
  - HYPERTENSION [None]
  - INTRAOCULAR LENS IMPLANT [None]
  - MUSCLE CONTRACTURE [None]
  - NECROSIS ISCHAEMIC [None]
  - NEUROPATHY PERIPHERAL [None]
  - OESTROGEN RECEPTOR ASSAY POSITIVE [None]
  - PAIN [None]
  - PNEUMONIA ASPIRATION [None]
  - POST PROCEDURAL HAEMORRHAGE [None]
  - PROGESTERONE RECEPTOR ASSAY POSITIVE [None]
  - PULMONARY CONGESTION [None]
  - RADICAL MASTECTOMY [None]
  - RADIOTHERAPY [None]
  - RECTAL HAEMORRHAGE [None]
  - SALIVARY GLAND DISORDER [None]
  - SKIN GRAFT [None]
  - SOFT TISSUE NECROSIS [None]
  - SUBMANDIBULAR MASS [None]
  - SWELLING [None]
  - THROMBOPHLEBITIS SUPERFICIAL [None]
  - TYPE 2 DIABETES MELLITUS [None]
  - VISION BLURRED [None]
  - WEIGHT DECREASED [None]
  - WOUND DEHISCENCE [None]
  - WOUND DRAINAGE [None]
